FAERS Safety Report 8916273 (Version 1)
Quarter: 2012Q4

REPORT INFORMATION
  Report Type: Report from Study
  Country: US (occurrence: US)
  Receive Date: 20121120
  Receipt Date: 20121120
  Transmission Date: 20130627
  Serious: Yes (Life-Threatening, Hospitalization)
  Sender: FDA-Public Use
  Company Number: US-PFIZER INC-2012287899

PATIENT
  Age: 51 Year
  Sex: Female

DRUGS (2)
  1. EXEMESTANE [Suspect]
     Indication: BREAST CANCER
     Dosage: 25 mg, UNK
     Route: 048
     Dates: start: 20071219
  2. TRIPTORELIN PAMOATE [Suspect]
     Indication: BREAST CANCER
     Dosage: 3.75 mg, UNK
     Route: 030
     Dates: start: 20071219

REACTIONS (1)
  - Deep vein thrombosis [Not Recovered/Not Resolved]
